FAERS Safety Report 18394191 (Version 2)
Quarter: 2021Q2

REPORT INFORMATION
  Report Type: Spontaneous
  Country: US (occurrence: US)
  Receive Date: 20201016
  Receipt Date: 20210615
  Transmission Date: 20210717
  Serious: Yes (Hospitalization)
  Sender: FDA-Public Use
  Company Number: US-CATALYST PHARMACEUTICALS, INC-2020CAT00525

PATIENT
  Sex: Female
  Weight: 49.43 kg

DRUGS (27)
  1. DESIPRAMINE [Concomitant]
     Active Substance: DESIPRAMINE
     Dosage: 100 MG, 1X/DAY
  2. LUPRON DEPOT [Concomitant]
     Active Substance: LEUPROLIDE ACETATE
     Dosage: 11.25 MG, EVERY 3 MONTHS
     Route: 030
  3. MYRBETRIQ [Concomitant]
     Active Substance: MIRABEGRON
     Dosage: 25 MG, 1X/DAY
  4. MESTINON [Concomitant]
     Active Substance: PYRIDOSTIGMINE BROMIDE
     Dosage: 60 MG, 4X/DAY
  5. ATIVAN [Concomitant]
     Active Substance: LORAZEPAM
     Dosage: 1 MG, 3X/DAY
  6. REGLAN [Concomitant]
     Active Substance: METOCLOPRAMIDE HYDROCHLORIDE
     Dosage: 5 MG, 3X/DAY
  7. FIRDAPSE [Suspect]
     Active Substance: AMIFAMPRIDINE PHOSPHATE
     Indication: MYASTHENIC SYNDROME
     Dosage: 10 MG, 4X/DAY
     Route: 048
  8. FERROUS GLUCONATE [Concomitant]
     Active Substance: FERROUS GLUCONATE
     Dosage: 240 MG, 1X/DAY
  9. VITAMIN D3 [Concomitant]
     Active Substance: CHOLECALCIFEROL
     Dosage: 125 ?G
  10. ATIVAN [Concomitant]
     Active Substance: LORAZEPAM
     Dosage: 1 MG, AS NEEDED
  11. PROMETHAZINE [Concomitant]
     Active Substance: PROMETHAZINE HYDROCHLORIDE
     Dosage: 50 MG, 1X/DAY AS NEEDED
  12. DESIPRAMINE [Concomitant]
     Active Substance: DESIPRAMINE
     Dosage: 150 MG, 1X/DAY AT NIGHT
  13. ZOFRAN [Concomitant]
     Active Substance: ONDANSETRON HYDROCHLORIDE
     Dosage: 4 MG, 3X/DAY AS NEEDED
  14. DIAZEPAM. [Concomitant]
     Active Substance: DIAZEPAM
     Dosage: 5 MG, AS NEEDED
  15. ZOFRAN [Concomitant]
     Active Substance: ONDANSETRON HYDROCHLORIDE
     Dosage: 8 MG, 3X/DAY
  16. FIRDAPSE [Suspect]
     Active Substance: AMIFAMPRIDINE PHOSPHATE
     Indication: MYASTHENIA GRAVIS
     Dosage: 10 MG, 3X/DAY
     Route: 048
     Dates: start: 202009
  17. PROMETHAZINE [Concomitant]
     Active Substance: PROMETHAZINE HYDROCHLORIDE
     Dosage: 50 MG, AS NEEDED
  18. VITAMIN B12 [Concomitant]
     Active Substance: CYANOCOBALAMIN
     Dosage: 2X/MONTH EVERY 2 WEEKS
  19. PYRIDIUM [Concomitant]
     Active Substance: PHENAZOPYRIDINE
     Dosage: 200 MG, 3X/DAY AS NEEDED
  20. FERROUS GLUCONATE [Concomitant]
     Active Substance: FERROUS GLUCONATE
     Dosage: 240 MG, 2X/DAY
  21. ^NURIBEC^ [Concomitant]
     Dosage: 50 MG, 1X/DAY AT NIGHT
  22. NORETHINDRONE. [Concomitant]
     Active Substance: NORETHINDRONE
     Dosage: 5 MG, 1X/DAY AT NIGHT
  23. CYCLOBENZAPRINE. [Concomitant]
     Active Substance: CYCLOBENZAPRINE
     Dosage: 10 MG, AS NEEDED
  24. MESTINON [Concomitant]
     Active Substance: PYRIDOSTIGMINE BROMIDE
     Dosage: 120 MG, 4X/DAY
  25. METRONIDAZOLE. [Concomitant]
     Active Substance: METRONIDAZOLE
     Dosage: UNK, 1X/DAY
     Route: 061
  26. TOPIRAMATE. [Concomitant]
     Active Substance: TOPIRAMATE
     Dosage: 200 MG, 1X/DAY AT NIGHT
  27. BENADRYL [Concomitant]
     Active Substance: DIPHENHYDRAMINE HYDROCHLORIDE
     Dosage: 25 MG, AS NEEDED

REACTIONS (7)
  - Vomiting [Not Recovered/Not Resolved]
  - Blood magnesium decreased [Unknown]
  - Off label use [Not Recovered/Not Resolved]
  - Blood potassium decreased [Unknown]
  - Product dose omission issue [Recovered/Resolved]
  - Abdominal pain [Not Recovered/Not Resolved]
  - Cyclic vomiting syndrome [Unknown]

NARRATIVE: CASE EVENT DATE: 2020
